FAERS Safety Report 9992217 (Version 2)
Quarter: 2014Q1

REPORT INFORMATION
  Report Type: Spontaneous
  Country: US (occurrence: US)
  Receive Date: 20140310
  Receipt Date: 20140310
  Transmission Date: 20141002
  Serious: No
  Sender: FDA-Public Use
  Company Number: US-ASTELLAS-2013US012792

PATIENT
  Age: 74 Year
  Sex: Male
  Weight: 61 kg

DRUGS (6)
  1. XTANDI [Suspect]
     Indication: PROSTATE CANCER
     Dosage: 160 MG, ONCE DAILY IN MORNING
     Route: 048
     Dates: start: 201307
  2. ECOTRIN [Concomitant]
     Indication: PRODUCT USED FOR UNKNOWN INDICATION
     Dosage: 81 MG, UNKNOWN/D
     Route: 065
  3. ZOLADEX                            /00732101/ [Concomitant]
     Indication: PROSTATE CANCER
     Dosage: UNK, ONCE EVERY THREE MONTHS
     Route: 065
  4. ZOMETA [Concomitant]
     Indication: BONE DENSITY ABNORMAL
     Dosage: UNK, ONCE EVERY 4 WEEKS
     Route: 065
  5. MINOCYCLINE [Concomitant]
     Indication: ANTIBIOTIC THERAPY
     Dosage: UNK
     Route: 065
  6. VITAMIN D                          /00107901/ [Concomitant]
     Indication: PRODUCT USED FOR UNKNOWN INDICATION
     Dosage: 10000 MG, ONCE DAILY
     Route: 065

REACTIONS (1)
  - Dyspnoea [Not Recovered/Not Resolved]
